FAERS Safety Report 10195828 (Version 1)
Quarter: 2014Q2

REPORT INFORMATION
  Report Type: Spontaneous
  Country: US (occurrence: None)
  Receive Date: 20140522
  Receipt Date: 20140522
  Transmission Date: 20141212
  Serious: Yes (Other)
  Sender: FDA-Public Use
  Company Number: ADR-2014-00853

PATIENT
  Age: 34 Year
  Sex: Female

DRUGS (3)
  1. BACLOFEN [Suspect]
  2. MORPHINE [Suspect]
  3. BUPIVACAINE [Suspect]

REACTIONS (9)
  - Muscle tightness [None]
  - Muscle spasticity [None]
  - Pain [None]
  - Disease progression [None]
  - Injury [None]
  - Musculoskeletal disorder [None]
  - Medical device complication [None]
  - Nerve compression [None]
  - Unevaluable event [None]
